FAERS Safety Report 5997258-4 (Version None)
Quarter: 2008Q4

REPORT INFORMATION
  Report Type: 
  Country: None (occurrence: None)
  Receive Date: 20081212
  Receipt Date: 20081113
  Transmission Date: 20090506
  Serious: Yes (Other)
  Sender: FDA-Public Use
  Company Number: US-ABBOTT-08P-163-0486492-00

PATIENT
  Sex: Male
  Weight: 86.26 kg

DRUGS (5)
  1. HUMIRA [Suspect]
     Indication: CROHN'S DISEASE
     Dosage: PRE-FILLED SYRINGE FOR CROHN'S
     Route: 058
     Dates: start: 20010101, end: 20010101
  2. HUMIRA [Suspect]
     Indication: RHEUMATOID ARTHRITIS
     Dosage: PEN FOR CROHN'S
     Route: 058
     Dates: start: 20060101
  3. HUMIRA [Suspect]
     Dosage: PEN FOR RHEUMATOID ARTHRITIS
     Route: 058
     Dates: start: 20080601, end: 20080901
  4. HUMIRA [Suspect]
     Dosage: ONE DOSE
     Route: 058
     Dates: start: 20081101, end: 20081101
  5. PREDNISONE TAB [Concomitant]
     Indication: RHEUMATOID ARTHRITIS
     Route: 048
     Dates: end: 20080801

REACTIONS (6)
  - ARTHRALGIA [None]
  - BACK PAIN [None]
  - HERPES SIMPLEX [None]
  - SINUSITIS [None]
  - SQUAMOUS CELL CARCINOMA [None]
  - URINARY TRACT INFECTION [None]
